FAERS Safety Report 6435297-X (Version None)
Quarter: 2009Q4

REPORT INFORMATION
  Report Type: 
  Country: None (occurrence: None)
  Receive Date: 20091110
  Receipt Date: 20091102
  Transmission Date: 20100525
  Serious: Yes (Hospitalization)
  Sender: FDA-Public Use
  Company Number: FR-BAXTER-2009BH017031

PATIENT
  Age: 57 Year
  Sex: Female

DRUGS (5)
  1. ENDOXAN BAXTER [Suspect]
     Indication: BREAST CANCER
     Route: 042
     Dates: start: 20090917, end: 20090917
  2. MYOCET [Suspect]
     Indication: BREAST CANCER
     Route: 042
     Dates: start: 20090917, end: 20090917
  3. SKENAN [Concomitant]
     Indication: BREAST CANCER
     Route: 048
     Dates: start: 20080601, end: 20090922
  4. FEMARA [Concomitant]
     Indication: BREAST CANCER
     Route: 048
     Dates: start: 20061001
  5. SKENAN [Concomitant]
     Route: 048
     Dates: start: 20080601, end: 20090922

REACTIONS (4)
  - ABDOMINAL PAIN [None]
  - DIARRHOEA [None]
  - RECTAL HAEMORRHAGE [None]
  - VOMITING [None]
